FAERS Safety Report 14225546 (Version 1)
Quarter: 2017Q4

REPORT INFORMATION
  Report Type: Spontaneous
  Country: US (occurrence: None)
  Receive Date: 20171123
  Receipt Date: 20171123
  Transmission Date: 20180321
  Serious: No
  Sender: FDA-Public Use
  Company Number: None

PATIENT
  Age: 63 Year
  Sex: Female

DRUGS (1)
  1. STELARA [Suspect]
     Active Substance: USTEKINUMAB
     Indication: PSORIASIS
     Dosage: 90MG/ML PFS EVERY 3 MONTHS SUBCUTANEOUSLY
     Route: 058
     Dates: start: 20170801

REACTIONS (2)
  - Metabolic surgery [None]
  - Hospitalisation [None]

NARRATIVE: CASE EVENT DATE: 20171017
